FAERS Safety Report 18881539 (Version 1)
Quarter: 2021Q1

REPORT INFORMATION
  Report Type: Spontaneous
  Country: DE (occurrence: DE)
  Receive Date: 20210211
  Receipt Date: 20210211
  Transmission Date: 20210420
  Serious: Yes (Congenital Anomaly)
  Sender: FDA-Public Use
  Company Number: NVSC2021DE031278

PATIENT

DRUGS (1)
  1. NAPROXEN. [Suspect]
     Active Substance: NAPROXEN
     Indication: FOETAL EXPOSURE DURING PREGNANCY
     Dosage: MATERNAL DOSE: UNK
     Route: 064

REACTIONS (5)
  - Heart disease congenital [Unknown]
  - Oesophageal atresia [Unknown]
  - Tracheo-oesophageal fistula [Unknown]
  - Choanal stenosis [Unknown]
  - Foetal exposure during pregnancy [Unknown]
